FAERS Safety Report 10695916 (Version 1)
Quarter: 2015Q1

REPORT INFORMATION
  Report Type: Spontaneous
  Country: NO (occurrence: None)
  Receive Date: 20150105
  Receipt Date: 20150105
  Transmission Date: 20150721
  Serious: Yes (Other)
  Sender: FDA-Public Use
  Company Number: 2691849

PATIENT
  Age: 67 Year
  Sex: Female

DRUGS (8)
  1. REMIFENTANIL HYDROCHLORIDE [Suspect]
     Active Substance: REMIFENTANIL HYDROCHLORIDE
     Indication: ANAESTHESIA PROCEDURE
     Route: 042
     Dates: start: 20141127, end: 20141127
  2. DESFLURANE. [Suspect]
     Active Substance: DESFLURANE
     Indication: ANAESTHESIA PROCEDURE
     Route: 042
     Dates: start: 20141127, end: 20141127
  3. PHENYLEPHRINE [Suspect]
     Active Substance: PHENYLEPHRINE\PHENYLEPHRINE HYDROCHLORIDE
     Indication: PRODUCT USED FOR UNKNOWN INDICATION
     Route: 051
     Dates: start: 20141127, end: 20141127
  4. THIOPENTAL [Suspect]
     Active Substance: THIOPENTAL
     Indication: ANAESTHESIA PROCEDURE
     Route: 042
     Dates: start: 20141127, end: 20141127
  5. CEFALOTIN [Suspect]
     Active Substance: CEPHALOTHIN
     Indication: ANTIBIOTIC PROPHYLAXIS
     Route: 042
     Dates: start: 20141127, end: 20141127
  6. CISATRACURIUM BESILATE [Suspect]
     Active Substance: CISATRACURIUM BESYLATE
     Indication: ANAESTHESIA PROCEDURE
     Route: 042
     Dates: start: 20141127, end: 20141127
  7. FENTANYL. [Suspect]
     Active Substance: FENTANYL
     Indication: ANAESTHESIA PROCEDURE
     Route: 042
     Dates: start: 20141127, end: 20141127
  8. PROPOFOL. [Suspect]
     Active Substance: PROPOFOL
     Indication: ANAESTHESIA PROCEDURE
     Route: 042
     Dates: start: 20141127, end: 20141127

REACTIONS (4)
  - Urticaria [None]
  - Hypertension [None]
  - Oropharyngeal discomfort [None]
  - Hypersensitivity [None]

NARRATIVE: CASE EVENT DATE: 20141127
